FAERS Safety Report 11287781 (Version 1)
Quarter: 2015Q3

REPORT INFORMATION
  Report Type: Spontaneous
  Country: US (occurrence: None)
  Receive Date: 20150720
  Receipt Date: 20150720
  Transmission Date: 20151125
  Serious: No
  Sender: FDA-Public Use
  Company Number: None

PATIENT
  Age: 49 Year
  Sex: Male
  Weight: 86.18 kg

DRUGS (1)
  1. CIPROFLOXACIN. [Suspect]
     Active Substance: CIPROFLOXACIN
     Indication: INFECTION
     Dosage: BY MOUTH
     Dates: start: 20150629, end: 20150706

REACTIONS (5)
  - Refusal of treatment by patient [None]
  - Hypoaesthesia [None]
  - Paraesthesia [None]
  - Burning sensation [None]
  - Arthralgia [None]

NARRATIVE: CASE EVENT DATE: 20150704
